FAERS Safety Report 10540157 (Version 1)
Quarter: 2014Q4

REPORT INFORMATION
  Report Type: Spontaneous
  Country: US (occurrence: None)
  Receive Date: 20141023
  Receipt Date: 20141023
  Transmission Date: 20150529
  Serious: Yes (Hospitalization)
  Sender: FDA-Public Use
  Company Number: None

PATIENT
  Age: 84 Year
  Sex: Male
  Weight: 69.5 kg

DRUGS (1)
  1. WARFARIN [Suspect]
     Active Substance: WARFARIN
     Indication: AORTIC VALVE REPLACEMENT
     Route: 048
     Dates: start: 20021209, end: 20140924

REACTIONS (3)
  - Haematoma [None]
  - Anaemia [None]
  - Haemorrhage [None]

NARRATIVE: CASE EVENT DATE: 20140915
